FAERS Safety Report 14430864 (Version 3)
Quarter: 2019Q2

REPORT INFORMATION
  Report Type: Report from Study
  Country: DE (occurrence: DE)
  Receive Date: 20180124
  Receipt Date: 20190606
  Transmission Date: 20190711
  Serious: Yes (Hospitalization, Other)
  Sender: FDA-Public Use
  Company Number: DE-ROCHE-1762283

PATIENT
  Age: 53 Year
  Sex: Female
  Weight: 56 kg

DRUGS (15)
  1. 5-FLUOROURACIL [FLUOROURACIL] [Concomitant]
     Active Substance: FLUOROURACIL
     Route: 040
     Dates: start: 20150527
  2. VANCOMYCIN [Concomitant]
     Active Substance: VANCOMYCIN
  3. 5-FLUOROURACIL [FLUOROURACIL] [Concomitant]
     Active Substance: FLUOROURACIL
     Route: 041
     Dates: start: 20150428, end: 20150527
  4. 5-FLUOROURACIL [FLUOROURACIL] [Concomitant]
     Active Substance: FLUOROURACIL
     Route: 041
     Dates: start: 20150511
  5. 5-FLUOROURACIL [FLUOROURACIL] [Concomitant]
     Active Substance: FLUOROURACIL
     Route: 041
     Dates: start: 20150527
  6. FOLINIC ACID [Concomitant]
     Active Substance: LEUCOVORIN
     Route: 041
     Dates: start: 20150511
  7. FOLINIC ACID [Concomitant]
     Active Substance: LEUCOVORIN
     Route: 041
     Dates: start: 20150527
  8. 5-FLUOROURACIL [FLUOROURACIL] [Concomitant]
     Active Substance: FLUOROURACIL
     Route: 040
     Dates: start: 20150511
  9. FOLINIC ACID [Concomitant]
     Active Substance: LEUCOVORIN
     Indication: COLORECTAL CANCER
     Route: 041
     Dates: start: 20150428
  10. BEVACIZUMAB. [Suspect]
     Active Substance: BEVACIZUMAB
     Indication: COLORECTAL CANCER
     Dosage: FIVE CYCLES WERE ADMINISTERED
     Route: 042
     Dates: start: 20150428, end: 20150527
  11. OXALIPLATIN. [Concomitant]
     Active Substance: OXALIPLATIN
     Indication: COLORECTAL CANCER
     Route: 041
     Dates: start: 20150428
  12. BEVACIZUMAB. [Suspect]
     Active Substance: BEVACIZUMAB
     Route: 042
     Dates: start: 201508
  13. OXALIPLATIN. [Concomitant]
     Active Substance: OXALIPLATIN
     Route: 041
     Dates: start: 20150511
  14. 5-FLUOROURACIL [FLUOROURACIL] [Concomitant]
     Active Substance: FLUOROURACIL
     Indication: COLORECTAL CANCER
     Route: 040
     Dates: start: 20150428
  15. OXALIPLATIN. [Concomitant]
     Active Substance: OXALIPLATIN
     Route: 041
     Dates: start: 20150527

REACTIONS (5)
  - Pyrexia [Recovering/Resolving]
  - Syncope [Not Recovered/Not Resolved]
  - Liver abscess [Recovered/Resolved]
  - Tumour perforation [Not Recovered/Not Resolved]
  - General physical health deterioration [Recovering/Resolving]

NARRATIVE: CASE EVENT DATE: 20150608
